FAERS Safety Report 8453666-3 (Version None)
Quarter: 2012Q2

REPORT INFORMATION
  Report Type: 
  Country: None (occurrence: None)
  Receive Date: 20120620
  Receipt Date: 20120611
  Transmission Date: 20120825
  Serious: Yes (Other)
  Sender: FDA-Public Use
  Company Number: US-ASTRAZENECA-2012SE39211

PATIENT
  Age: 81 Year
  Sex: Female

DRUGS (10)
  1. PRILOSEC [Suspect]
     Route: 048
  2. CELEBREX [Concomitant]
     Route: 048
  3. METHYLENEPREDNISOLONE ACETATE [Concomitant]
     Dosage: 40MG/ML
  4. SPIRONOLACTONE [Concomitant]
     Route: 048
  5. TRAMADOL HCL [Concomitant]
     Route: 048
  6. HYDROCODONE [Concomitant]
     Dosage: UNKNOWN DOSE
     Route: 048
  7. FUROSEMIDE [Concomitant]
     Route: 048
  8. HYDROCODONE BITARTRATE + ACETAMINOPHEN [Concomitant]
     Dosage: 10-650 MG ONE TABLET
     Route: 048
  9. REQUIP [Concomitant]
     Dosage: UNKNOWN DOSE
     Route: 048
  10. DEPO-MEDROL [Concomitant]

REACTIONS (6)
  - OSTEOARTHRITIS [None]
  - SYNOVIAL CYST [None]
  - RHEUMATOID ARTHRITIS [None]
  - CERVICAL MYELOPATHY [None]
  - INTERVERTEBRAL DISC DEGENERATION [None]
  - VENOUS INSUFFICIENCY [None]
